FAERS Safety Report 14046519 (Version 2)
Quarter: 2018Q2

REPORT INFORMATION
  Report Type: Spontaneous
  Country: IN (occurrence: IN)
  Receive Date: 20171005
  Receipt Date: 20180523
  Transmission Date: 20180711
  Serious: Yes (Hospitalization, Other)
  Sender: FDA-Public Use
  Company Number: IN-ACCORD-059599

PATIENT
  Age: 50 Year
  Sex: Male

DRUGS (1)
  1. FOLITRAX [Suspect]
     Active Substance: METHOTREXATE SODIUM
     Indication: PSORIASIS
     Dosage: BRAND NAME: FOLITREX ?NON-MAH PRODUCT

REACTIONS (3)
  - Dermatitis bullous [Unknown]
  - Medication error [Unknown]
  - Liver function test abnormal [Recovered/Resolved]
